FAERS Safety Report 18156963 (Version 1)
Quarter: 2020Q3

REPORT INFORMATION
  Report Type: Spontaneous
  Country: US (occurrence: US)
  Receive Date: 20200817
  Receipt Date: 20200817
  Transmission Date: 20201103
  Serious: No
  Sender: FDA-Public Use
  Company Number: US-JNJFOC-20200816610

PATIENT

DRUGS (1)
  1. DARZALEX [Suspect]
     Active Substance: DARATUMUMAB
     Indication: PLASMA CELL MYELOMA
     Dosage: REMAINING 700MG ADMINISTERED ON DAY 2
     Route: 065

REACTIONS (3)
  - Product administration error [Unknown]
  - Adverse reaction [Unknown]
  - Infusion related reaction [Unknown]
